FAERS Safety Report 5881132-8 (Version None)
Quarter: 2008Q3

REPORT INFORMATION
  Report Type: 
  Country: None (occurrence: None)
  Receive Date: 20080912
  Receipt Date: 20080617
  Transmission Date: 20090109
  Serious: No
  Sender: FDA-Public Use
  Company Number: US-ABBOTT-08P-163-0458713-00

PATIENT
  Sex: Female

DRUGS (2)
  1. HUMIRA [Suspect]
     Indication: CROHN'S DISEASE
     Route: 050
     Dates: start: 20080416
  2. LOPERAMIDE HYDROCHLORIDE [Concomitant]
     Indication: CROHN'S DISEASE
     Dosage: ONE BOX A DAY
     Route: 048

REACTIONS (1)
  - DRUG INEFFECTIVE [None]
